FAERS Safety Report 7602312-7 (Version None)
Quarter: 2011Q3

REPORT INFORMATION
  Report Type: 
  Country: None (occurrence: None)
  Receive Date: 20110712
  Receipt Date: 20110701
  Transmission Date: 20111222
  Serious: Yes (Other)
  Sender: FDA-Public Use
  Company Number: AR-AMGEN-ARGSP2011029068

PATIENT
  Age: 67 Year
  Sex: Female
  Weight: 62.5 kg

DRUGS (3)
  1. ENBREL [Suspect]
     Indication: RHEUMATOID ARTHRITIS
     Dosage: 50 MG, WEEKLY
     Route: 058
     Dates: start: 20080401, end: 20110501
  2. DICLOFENAC [Concomitant]
     Dosage: UNK
     Route: 048
  3. CORTICOSTEROIDS [Concomitant]
     Dosage: UNK
     Route: 048

REACTIONS (1)
  - SPINAL OSTEOARTHRITIS [None]
